FAERS Safety Report 12130055 (Version 1)
Quarter: 2016Q1

REPORT INFORMATION
  Report Type: Other
  Country: US (occurrence: US)
  Receive Date: 20160229
  Receipt Date: 20160229
  Transmission Date: 20160526
  Serious: No
  Sender: FDA-Public Use
  Company Number: US-ACORDA-ACO_30660_2012

PATIENT
  Sex: Female
  Weight: 61.22 kg

DRUGS (3)
  1. AMPYRA [Suspect]
     Active Substance: DALFAMPRIDINE
     Indication: MULTIPLE SCLEROSIS
  2. BETASERON [Concomitant]
     Active Substance: INTERFERON BETA-1B
     Indication: PRODUCT USED FOR UNKNOWN INDICATION
     Dosage: 0.3 MG, QOD
     Route: 058
  3. AMPYRA [Suspect]
     Active Substance: DALFAMPRIDINE
     Indication: GAIT DISTURBANCE
     Dosage: 10 MG, BID
     Route: 048
     Dates: end: 2012

REACTIONS (5)
  - Therapy cessation [Unknown]
  - Muscular weakness [Unknown]
  - Fatigue [Not Recovered/Not Resolved]
  - Head injury [Unknown]
  - Fall [Unknown]

NARRATIVE: CASE EVENT DATE: 2012
